FAERS Safety Report 5893154-1 (Version None)
Quarter: 2008Q3

REPORT INFORMATION
  Report Type: 
  Country: None (occurrence: None)
  Receive Date: 20080923
  Receipt Date: 20070828
  Transmission Date: 20090109
  Serious: No
  Sender: FDA-Public Use
  Company Number: US-ASTRAZENECA-2007UW20509

PATIENT
  Age: 36 Year
  Sex: Female
  Weight: 88 kg

DRUGS (3)
  1. SEROQUEL [Suspect]
     Route: 048
     Dates: start: 20010101
  2. SEROQUEL [Suspect]
     Dosage: 1/2 25 MG TABLET
     Route: 048
  3. LEXAPRO [Concomitant]

REACTIONS (2)
  - HEADACHE [None]
  - HYPERVIGILANCE [None]
